FAERS Safety Report 9806296 (Version 2)
Quarter: 2014Q1

REPORT INFORMATION
  Report Type: Spontaneous
  Country: GB (occurrence: None)
  Receive Date: 20140107
  Receipt Date: 20140109
  Transmission Date: 20141002
  Serious: Yes (Hospitalization)
  Sender: FDA-Public Use
  Company Number: SYM-2014-14590

PATIENT
  Age: 2 Decade
  Sex: 0

DRUGS (9)
  1. METRONIDAZOLE [Suspect]
     Indication: PRODUCT USED FOR UNKNOWN INDICATION
     Dosage: 500MG, 3 IN 1 D INTRAVENOUS
     Route: 042
     Dates: start: 20111111
  2. LANSOPRAZOLE [Suspect]
     Indication: PRODUCT USED FOR UNKNOWN INDICATION
     Route: 048
     Dates: start: 20110804, end: 20110811
  3. TEICOPLANIN SODIUM (TEICOPLANIN) (TEICOPLANIN) [Suspect]
     Indication: PRODUCT USED FOR UNKNOWN INDICATION
     Dosage: 400MG, 2 IN 1 D INTRAVENOUS
     Route: 042
  4. AMOXICILLIN [Suspect]
     Indication: PRODUCT USED FOR UNKNOWN INDICATION
     Dosage: 500MG 3 IN 1 D ORAL
     Route: 048
     Dates: start: 20110804, end: 20110811
  5. TRIMETHOPRIM [Suspect]
     Indication: PRODUCT USED FOR UNKNOWN INDICATION
     Route: 048
     Dates: start: 20111012, end: 20111018
  6. ERTAPENEM [Suspect]
     Indication: GRAM STAIN POSITIVE
     Route: 042
     Dates: start: 20111018, end: 20111025
  7. CO-AMOXICLAV [Suspect]
     Indication: PRODUCT USED FOR UNKNOWN INDICATION
     Dosage: 1.2GM, 3 IN 1 D, INTRAVENOUS
     Route: 042
     Dates: start: 20111103, end: 20111114
  8. MEROPENEM [Suspect]
     Indication: PRODUCT USED FOR UNKNOWN INDICATION
     Route: 042
     Dates: start: 20111025, end: 20111103
  9. GENTAMICIN [Suspect]
     Indication: PRODUCT USED FOR UNKNOWN INDICATION
     Route: 040
     Dates: start: 20111018, end: 20111018

REACTIONS (1)
  - Clostridium difficile infection [None]
